FAERS Safety Report 8563486-7 (Version None)
Quarter: 2012Q3

REPORT INFORMATION
  Report Type: 
  Country: None (occurrence: None)
  Receive Date: 20120802
  Receipt Date: 20120726
  Transmission Date: 20120928
  Serious: Yes (Hospitalization)
  Sender: FDA-Public Use
  Company Number: IT-TEVA-350525ISR

PATIENT
  Sex: Male

DRUGS (2)
  1. CARBAMAZEPINE [Suspect]
     Indication: EPILEPSY
     Dosage: 150 MILLIGRAM;
     Route: 048
     Dates: start: 20120628, end: 20120628
  2. VENLAFAXINE [Suspect]
     Indication: ANTIDEPRESSANT THERAPY
     Dosage: 75 MILLIGRAM;
     Route: 048
     Dates: start: 20120628, end: 20120628

REACTIONS (2)
  - SOPOR [None]
  - DRUG ADMINISTRATION ERROR [None]
